FAERS Safety Report 15629859 (Version 2)
Quarter: 2018Q4

REPORT INFORMATION
  Report Type: Report from Study
  Country: US (occurrence: US)
  Receive Date: 20181117
  Receipt Date: 20181218
  Transmission Date: 20190205
  Serious: Yes (Hospitalization)
  Sender: FDA-Public Use
  Company Number: PHEH2018US047789

PATIENT
  Sex: Male

DRUGS (2)
  1. AFINITOR DISPERZ [Suspect]
     Active Substance: EVEROLIMUS
     Indication: ACUTE MYELOID LEUKAEMIA
     Dosage: 3 MG, QD
     Route: 048
     Dates: start: 20170301
  2. AFINITOR DISPERZ [Suspect]
     Active Substance: EVEROLIMUS
     Indication: TUBEROUS SCLEROSIS COMPLEX

REACTIONS (1)
  - Schizophrenia [Recovering/Resolving]
